FAERS Safety Report 25893232 (Version 2)
Quarter: 2025Q4

REPORT INFORMATION
  Report Type: Report from Study
  Country: BR (occurrence: BR)
  Receive Date: 20251008
  Receipt Date: 20251215
  Transmission Date: 20260118
  Serious: Yes (Hospitalization, Other)
  Sender: JOHNSON AND JOHNSON
  Company Number: BR-JNJFOC-20250441878

PATIENT
  Age: 53 Year
  Sex: Male
  Weight: 73 kg

DRUGS (4)
  1. TALVEY [Suspect]
     Active Substance: TALQUETAMAB-TGVS
     Indication: Plasma cell myeloma
     Dosage: LAST ADMINISTRATION DATE: 23-SEP-2025.
     Route: 058
  2. TALVEY [Suspect]
     Active Substance: TALQUETAMAB-TGVS
     Dosage: LAST ADMINISTRATION DATE: 19-AUG-2025
     Route: 058
  3. TALVEY [Suspect]
     Active Substance: TALQUETAMAB-TGVS
     Route: 058
  4. TALVEY [Suspect]
     Active Substance: TALQUETAMAB-TGVS
     Dosage: LAST ADMINISTRATION DATE: 24-NOV-2025
     Route: 058

REACTIONS (24)
  - Hip arthroplasty [Unknown]
  - Limb asymmetry [Unknown]
  - Dizziness [Unknown]
  - Vertigo [Not Recovered/Not Resolved]
  - Nausea [Unknown]
  - Vomiting [Unknown]
  - Visual impairment [Recovering/Resolving]
  - Nail discolouration [Unknown]
  - Inappropriate schedule of product administration [Unknown]
  - Alopecia [Recovering/Resolving]
  - Weight decreased [Unknown]
  - Dry mouth [Unknown]
  - Depression [Unknown]
  - Ageusia [Recovering/Resolving]
  - Hair growth abnormal [Recovering/Resolving]
  - Eyelash changes [Recovering/Resolving]
  - Nail avulsion [Not Recovered/Not Resolved]
  - Malaise [Unknown]
  - Nail disorder [Recovering/Resolving]
  - Onychoclasis [Recovering/Resolving]
  - Nail discolouration [Recovering/Resolving]
  - Cough [Recovering/Resolving]
  - Secretion discharge [Recovering/Resolving]
  - Corneal scar [Unknown]

NARRATIVE: CASE EVENT DATE: 20250420
